FAERS Safety Report 6837693-5 (Version None)
Quarter: 2010Q3

REPORT INFORMATION
  Report Type: 
  Country: None (occurrence: None)
  Receive Date: 20100713
  Receipt Date: 20070519
  Transmission Date: 20110219
  Serious: No
  Sender: FDA-Public Use
  Company Number: US-PFIZER INC-2007040331

PATIENT
  Sex: Male
  Weight: 137 kg

DRUGS (7)
  1. CHANTIX [Suspect]
     Indication: SMOKING CESSATION THERAPY
     Dates: start: 20070506
  2. HYDROCHLOROTHIAZIDE [Concomitant]
  3. PLAVIX [Concomitant]
  4. IMDUR [Concomitant]
  5. SPIRIVA [Concomitant]
  6. BUDESONIDE [Concomitant]
  7. ACCUPRIL [Concomitant]

REACTIONS (2)
  - HEADACHE [None]
  - INSOMNIA [None]
